FAERS Safety Report 21866647 (Version 1)
Quarter: 2023Q1

REPORT INFORMATION
  Report Type: Spontaneous
  Country: US (occurrence: US)
  Receive Date: 20230116
  Receipt Date: 20230116
  Transmission Date: 20230418
  Serious: No
  Sender: FDA-Public Use
  Company Number: US-INTRA-CELLULAR THERAPIES, INC.-2022ICT01331

PATIENT
  Age: 6 Decade
  Sex: Male

DRUGS (2)
  1. CAPLYTA [Suspect]
     Active Substance: LUMATEPERONE
     Dosage: UNK
     Dates: start: 2022, end: 2022
  2. CAPLYTA [Suspect]
     Active Substance: LUMATEPERONE
     Dosage: UNK  EVERY 48 HOURS (EVERY OTHER DAY)
     Dates: start: 2022

REACTIONS (2)
  - Off label use [Not Recovered/Not Resolved]
  - Sedation [Unknown]

NARRATIVE: CASE EVENT DATE: 20220101
